FAERS Safety Report 7018487-7 (Version None)
Quarter: 2010Q3

REPORT INFORMATION
  Report Type: 
  Country: None (occurrence: None)
  Receive Date: 20100923
  Receipt Date: 20100910
  Transmission Date: 20110219
  Serious: Yes (Hospitalization, Other)
  Sender: FDA-Public Use
  Company Number: 1000016260

PATIENT
  Age: 17 Year
  Sex: Female

DRUGS (1)
  1. MEMANTINE HCL [Suspect]
     Indication: HYPOXIC-ISCHAEMIC ENCEPHALOPATHY
     Dosage: 5 MG (5 MG, 1 IN 1 D)

REACTIONS (4)
  - ARRHYTHMOGENIC RIGHT VENTRICULAR DYSPLASIA [None]
  - LONG QT SYNDROME [None]
  - OFF LABEL USE [None]
  - VENTRICULAR FIBRILLATION [None]
